FAERS Safety Report 14815567 (Version 1)
Quarter: 2018Q2

REPORT INFORMATION
  Report Type: Spontaneous
  Country: JP (occurrence: JP)
  Receive Date: 20180426
  Receipt Date: 20180426
  Transmission Date: 20180711
  Serious: Yes (Death, Other)
  Sender: FDA-Public Use
  Company Number: JP-ASTRAZENECA-2017SE39071

PATIENT
  Age: 68 Year
  Sex: Female
  Weight: 29 kg

DRUGS (1)
  1. IRESSA [Suspect]
     Active Substance: GEFITINIB
     Indication: NON-SMALL CELL LUNG CANCER
     Route: 048
     Dates: start: 20150508, end: 201604

REACTIONS (10)
  - Therapy cessation [Unknown]
  - Paronychia [Recovering/Resolving]
  - Dry skin [Recovering/Resolving]
  - Metastases to liver [Unknown]
  - Pneumonia [Unknown]
  - Rash [Recovering/Resolving]
  - Metastases to spine [Unknown]
  - Onychoclasis [Recovering/Resolving]
  - Malignant neoplasm progression [Fatal]
  - Vena cava thrombosis [Unknown]

NARRATIVE: CASE EVENT DATE: 20150828
